FAERS Safety Report 9677787 (Version 1)
Quarter: 2013Q4

REPORT INFORMATION
  Report Type: Spontaneous
  Country: US (occurrence: None)
  Receive Date: 20131107
  Receipt Date: 20131107
  Transmission Date: 20140711
  Serious: Yes (Life-Threatening, Hospitalization)
  Sender: FDA-Public Use
  Company Number: None

PATIENT
  Age: 66 Year
  Sex: Male
  Weight: 85.4 kg

DRUGS (1)
  1. XARELTO (RIVAROXABAN) [Suspect]
     Indication: ATRIAL FIBRILLATION
     Dosage: 1 PILL
     Route: 048
     Dates: start: 20131022, end: 20131105

REACTIONS (4)
  - Bradycardia [None]
  - Hypotension [None]
  - Cardiac arrest [None]
  - Dyspnoea [None]
